FAERS Safety Report 6902295-9 (Version None)
Quarter: 2010Q3

REPORT INFORMATION
  Report Type: 
  Country: None (occurrence: None)
  Receive Date: 20100803
  Receipt Date: 20080509
  Transmission Date: 20110219
  Serious: Yes (Other)
  Sender: FDA-Public Use
  Company Number: US-PFIZER INC-2008041156

PATIENT
  Sex: Female

DRUGS (1)
  1. LYRICA [Suspect]

REACTIONS (5)
  - COGNITIVE DISORDER [None]
  - DIZZINESS [None]
  - FALL [None]
  - FEELING ABNORMAL [None]
  - FOOT FRACTURE [None]
